FAERS Safety Report 8708428 (Version 2)
Quarter: 2012Q4

REPORT INFORMATION
  Report Type: Report from Study
  Country: BE (occurrence: BE)
  Receive Date: 20120806
  Receipt Date: 20120919
  Transmission Date: 20130627
  Serious: Yes (Hospitalization)
  Sender: FDA-Public Use
  Company Number: BE-PFIZER INC-2012186655

PATIENT
  Age: 54 Year
  Sex: Male
  Weight: 91.5 kg

DRUGS (6)
  1. GENOTROPIN [Suspect]
     Dosage: 0.3 mg 7/wk
     Route: 058
     Dates: start: 20040528
  2. SUSTANON [Concomitant]
     Indication: BLOOD LUTEINISING HORMONE DECREASED
     Dosage: UNK
     Dates: start: 20050527
  3. SUSTANON [Concomitant]
     Indication: BLOOD FOLLICLE STIMULATING HORMONE ABNORMAL
  4. DEPAKINE [Concomitant]
     Indication: EPILEPSY
     Dosage: UNK
     Dates: start: 19991227
  5. DEPAKINE [Concomitant]
     Indication: CONVULSION
  6. HYDROCORTISONE [Concomitant]
     Indication: BLOOD CORTICOTROPHIN ABNORMAL
     Dosage: UNK
     Dates: start: 19910201

REACTIONS (1)
  - Wrist fracture [Recovered/Resolved]
